FAERS Safety Report 4681570-5 (Version None)
Quarter: 2005Q2

REPORT INFORMATION
  Report Type: 
  Country: None (occurrence: None)
  Receive Date: 20050602
  Receipt Date: 20050523
  Transmission Date: 20051028
  Serious: Yes (Hospitalization, Other)
  Sender: FDA-Public Use
  Company Number: 2005066930

PATIENT
  Age: 65 Year
  Sex: Female
  Weight: 79.3795 kg

DRUGS (10)
  1. AROMASIN [Suspect]
     Indication: BREAST CANCER
     Dosage: 25 MG (25 MG DAILY) ORAL
     Route: 048
     Dates: start: 20040709
  2. LOPRESSOR [Concomitant]
  3. MAXZIDE [Concomitant]
  4. SINGULAIR ^MSD ^ (MONTELEUKAST SODIUM) [Concomitant]
  5. WELCHOL [Concomitant]
  6. CITRACAL +D (CALCIUM CITRATE, ERGOCALCIFEROL) [Concomitant]
  7. VITAMIN C (VITAMIN C) [Concomitant]
  8. GLUCOSAMINE (GLUCOSAMINE) [Concomitant]
  9. ASPIRIN [Concomitant]
  10. MAVIK [Concomitant]

REACTIONS (14)
  - ABDOMINAL DISTENSION [None]
  - DEPRESSION [None]
  - DIFFICULTY IN WALKING [None]
  - FALL [None]
  - FATIGUE [None]
  - HEPATIC STEATOSIS [None]
  - LOSS OF CONSCIOUSNESS [None]
  - LUNG INFECTION [None]
  - MYALGIA [None]
  - NASAL CAVITY CANCER [None]
  - NEOPLASM MALIGNANT [None]
  - SOMNOLENCE [None]
  - TENDONITIS [None]
  - TOOTH DISORDER [None]
